FAERS Safety Report 8344983-6 (Version None)
Quarter: 2012Q2

REPORT INFORMATION
  Report Type: 
  Country: None (occurrence: None)
  Receive Date: 20120508
  Receipt Date: 20120424
  Transmission Date: 20120825
  Serious: Yes (Hospitalization)
  Sender: FDA-Public Use
  Company Number: AU-ELI_LILLY_AND_COMPANY-AU201204007972

PATIENT
  Sex: Male

DRUGS (1)
  1. ZYPREXA RELPREVV [Suspect]
     Indication: SCHIZOPHRENIA
     Dosage: 210 MG, FORTNIGHTLY

REACTIONS (5)
  - CYANOSIS [None]
  - SEDATION [None]
  - HYPERTENSION [None]
  - RESTLESSNESS [None]
  - AGITATION [None]
